FAERS Safety Report 8808595 (Version 1)
Quarter: 2012Q4

REPORT INFORMATION
  Report Type: Spontaneous
  Country: US (occurrence: None)
  Receive Date: 20120920
  Receipt Date: 20120920
  Transmission Date: 20130627
  Serious: Yes (Hospitalization)
  Sender: FDA-Public Use
  Company Number: None

PATIENT
  Age: 32 Year
  Sex: Female
  Weight: 63.1 kg

DRUGS (2)
  1. ACYCLOVIR [Suspect]
     Indication: MENINGITIS HERPES
     Route: 041
     Dates: start: 20120911, end: 20120915
  2. IBUPROFEN [Suspect]
     Route: 048
     Dates: start: 20120913, end: 20120914

REACTIONS (1)
  - Blood creatinine increased [None]
